FAERS Safety Report 8712240 (Version 2)
Quarter: 2013Q3

REPORT INFORMATION
  Report Type: Spontaneous
  Country: PT (occurrence: PT)
  Receive Date: 20120808
  Receipt Date: 20130704
  Transmission Date: 20140515
  Serious: Yes (Hospitalization, Other)
  Sender: FDA-Public Use
  Company Number: PT-AMGEN-PRTSP2012034242

PATIENT
  Age: 38 Year
  Sex: Female

DRUGS (7)
  1. ENBREL [Suspect]
     Indication: ANKYLOSING SPONDYLITIS
     Dosage: 50 MG, WEEKLY
     Route: 058
     Dates: start: 201201, end: 201204
  2. SULFASALAZINE [Concomitant]
     Indication: ANKYLOSING SPONDYLITIS
     Dosage: 1 G, 3X/DAY (8/8 HOURS)
     Dates: start: 201110
  3. NAPROXEN [Concomitant]
     Indication: ANKYLOSING SPONDYLITIS
     Dosage: UNK
  4. VOLTAREN                           /00372302/ [Concomitant]
     Indication: ANKYLOSING SPONDYLITIS
     Dosage: UNK
  5. PARACETAMOL [Concomitant]
     Indication: ANKYLOSING SPONDYLITIS
     Dosage: 1 G, 3X/DAY (8/8 HOURS)
  6. TRAMADOL                           /00599202/ [Concomitant]
     Indication: ANKYLOSING SPONDYLITIS
     Dosage: 100 MG, 2X/DAY (12/12 HOURS)
  7. DEFLAZACORT [Concomitant]
     Indication: ANKYLOSING SPONDYLITIS
     Dosage: 6 MG DAILY

REACTIONS (3)
  - Hypertension [Recovered/Resolved]
  - Nephrolithiasis [Unknown]
  - Convulsion [Recovered/Resolved]
